FAERS Safety Report 9424108 (Version 1)
Quarter: 2013Q3

REPORT INFORMATION
  Report Type: Other
  Country: ES (occurrence: ES)
  Receive Date: 20130729
  Receipt Date: 20130729
  Transmission Date: 20140515
  Serious: Yes (Hospitalization)
  Sender: FDA-Public Use
  Company Number: ES-SHIRE-ALL1-2013-04917

PATIENT
  Sex: Female
  Weight: 52 kg

DRUGS (10)
  1. XAGRID [Suspect]
     Indication: ESSENTIAL THROMBOCYTHAEMIA
     Dosage: 1.5 MG, 1X/DAY:QD
     Route: 048
     Dates: start: 2002, end: 2002
  2. XAGRID [Suspect]
     Dosage: 1 MG, OTHER (1 DAY A WEEK)
     Route: 048
     Dates: start: 2010
  3. XAGRID [Suspect]
     Dosage: 0.5 MG, OTHER (6 DAYS PER WEEK TAKES ONE CAPS/QD)
     Dates: start: 2010
  4. HYDREA [Suspect]
     Indication: ESSENTIAL THROMBOCYTHAEMIA
     Dosage: UNK, OTHER (DOSE INCREASED TO ONE MORE DAY PER WEEK)
     Route: 048
     Dates: start: 201307
  5. HYDREA [Suspect]
     Dosage: UNK, OTHER (REDUCE DOSE TO ONLY TWO MORE DAYS PER WEEK)
     Route: 048
     Dates: start: 201305
  6. HYDREA [Suspect]
     Dosage: UNK, OTHER (INCREASED TO THREE DAYS WITH ONE MORE TABLET)
     Route: 048
     Dates: start: 2013
  7. HYDREA [Suspect]
     Dosage: UNK UNK, OTHER (DOSE INCREASED 2 MORE TABLETS PER WEEK)
     Route: 048
     Dates: start: 201304
  8. HYDREA [Suspect]
     Dosage: UNK
     Route: 048
     Dates: start: 2002
  9. ADIRO [Concomitant]
     Indication: PROPHYLAXIS
     Dosage: 100 MG, 1X/DAY:QD
     Route: 065
  10. RASILEZ [Concomitant]
     Indication: HYPERTENSION
     Dosage: 1 DF, 1X/WEEK
     Route: 065

REACTIONS (5)
  - Pain in extremity [Recovered/Resolved]
  - Anxiety [Recovered/Resolved]
  - Platelet count increased [Unknown]
  - Viral infection [Unknown]
  - Diarrhoea [Unknown]
